FAERS Safety Report 16750051 (Version 1)
Quarter: 2019Q3

REPORT INFORMATION
  Report Type: Spontaneous
  Country: US (occurrence: US)
  Receive Date: 20190828
  Receipt Date: 20190828
  Transmission Date: 20191005
  Serious: No
  Sender: FDA-Public Use
  Company Number: US-AMGEN-USASP2019135598

PATIENT
  Sex: Female

DRUGS (1)
  1. PROLIA [Suspect]
     Active Substance: DENOSUMAB
     Indication: OSTEOPENIA
     Dosage: 60 MILLIGRAM
     Route: 065
     Dates: start: 201907

REACTIONS (7)
  - Bone pain [Unknown]
  - Weight decreased [Unknown]
  - Diarrhoea [Unknown]
  - Urticaria [Unknown]
  - Constipation [Unknown]
  - Off label use [Unknown]
  - Cough [Unknown]
